FAERS Safety Report 10948158 (Version 1)
Quarter: 2015Q1

REPORT INFORMATION
  Report Type: Spontaneous
  Country: US (occurrence: US)
  Receive Date: 20150324
  Receipt Date: 20150324
  Transmission Date: 20150721
  Serious: No
  Sender: FDA-Public Use
  Company Number: US-ASTRAZENECA-2015SE25852

PATIENT
  Sex: Female

DRUGS (6)
  1. TOPROL XL [Suspect]
     Active Substance: METOPROLOL SUCCINATE
     Dosage: HALF OF 25MG PILL
     Route: 048
  2. ALTACE [Suspect]
     Active Substance: RAMIPRIL
     Indication: HYPERTENSION
     Route: 048
  3. VITAMINS [Concomitant]
     Active Substance: VITAMINS
  4. BABY ASPIRIN [Concomitant]
     Active Substance: ASPIRIN
  5. ALTACE [Suspect]
     Active Substance: RAMIPRIL
     Indication: HYPERTENSION
     Route: 048
  6. ALTACE [Suspect]
     Active Substance: RAMIPRIL
     Indication: HYPERTENSION
     Route: 048

REACTIONS (6)
  - Nausea [Unknown]
  - Feeling abnormal [Unknown]
  - Headache [Unknown]
  - Drug ineffective [Unknown]
  - Intentional product misuse [Unknown]
  - Blood pressure increased [Unknown]
